FAERS Safety Report 18917780 (Version 2)
Quarter: 2021Q3

REPORT INFORMATION
  Report Type: Report from Study
  Country: US (occurrence: US)
  Receive Date: 20210219
  Receipt Date: 20210815
  Transmission Date: 20211014
  Serious: Yes (Death, Life-Threatening, Hospitalization, Other)
  Sender: FDA-Public Use
  Company Number: US-ASTRAZENECA-2021A021666

PATIENT
  Sex: Male

DRUGS (3)
  1. LYNPARZA [Suspect]
     Active Substance: OLAPARIB
     Indication: PANCREATIC CARCINOMA
     Route: 048
     Dates: start: 20210107, end: 20210119
  2. LYNPARZA [Suspect]
     Active Substance: OLAPARIB
     Indication: PANCREATIC CARCINOMA
     Dosage: 150MG IN THE MORNING AND 300MG AT NIGHT
     Route: 048
     Dates: start: 20210106, end: 20210107
  3. LYNPARZA [Suspect]
     Active Substance: OLAPARIB
     Indication: PANCREATIC CARCINOMA
     Dosage: 150MG IN THE MORNING AND 300MG AT NIGHT
     Route: 048
     Dates: start: 20201229, end: 20210101

REACTIONS (13)
  - Drug ineffective [Not Recovered/Not Resolved]
  - Renal function test abnormal [Recovering/Resolving]
  - Liver function test abnormal [Not Recovered/Not Resolved]
  - Laboratory test abnormal [Unknown]
  - Death [Fatal]
  - Pain [Recovering/Resolving]
  - Asthenia [Not Recovered/Not Resolved]
  - Yellow skin [Unknown]
  - Feeling abnormal [Unknown]
  - Biliary obstruction [Recovered/Resolved]
  - Blood bilirubin increased [Unknown]
  - Multiple organ dysfunction syndrome [Not Recovered/Not Resolved]
  - Intestinal obstruction [Not Recovered/Not Resolved]

NARRATIVE: CASE EVENT DATE: 202012
